FAERS Safety Report 7066092-9 (Version None)
Quarter: 2010Q4

REPORT INFORMATION
  Report Type: 
  Country: None (occurrence: None)
  Receive Date: 20101027
  Receipt Date: 20100709
  Transmission Date: 20110411
  Serious: Yes (Hospitalization, Disabling)
  Sender: FDA-Public Use
  Company Number: HQWYE303321JUL04

PATIENT
  Sex: Female

DRUGS (2)
  1. PREMPRO [Suspect]
     Indication: HORMONE REPLACEMENT THERAPY
     Dosage: UNKNOWN
     Dates: start: 19750101, end: 20020101
  2. CONJUGATED ESTROGENS [Suspect]
     Dosage: UNKNOWN DOSE AND FREQUENCY

REACTIONS (1)
  - CEREBROVASCULAR ACCIDENT [None]
